FAERS Safety Report 9398374 (Version 1)
Quarter: 2013Q3

REPORT INFORMATION
  Report Type: Spontaneous
  Country: IT (occurrence: IT)
  Receive Date: 20130712
  Receipt Date: 20130712
  Transmission Date: 20140515
  Serious: Yes (Hospitalization)
  Sender: FDA-Public Use
  Company Number: IT-BAYER-2013-083838

PATIENT
  Age: 86 Year
  Sex: Male
  Weight: 75 kg

DRUGS (9)
  1. CARDIOASPIRIN [Suspect]
     Indication: PLATELET AGGREGATION INHIBITION
     Dosage: DAILY DOSE 100 MG
     Route: 048
     Dates: end: 20130526
  2. PLAVIX [Suspect]
     Indication: PLATELET AGGREGATION INHIBITION
     Dosage: DAILY DOSE 75 MG
     Route: 048
     Dates: end: 20130527
  3. PLAVIX [Suspect]
     Indication: PLATELET AGGREGATION INHIBITION
  4. LASIX [Concomitant]
     Dosage: DAILY DOSE 50 MG
     Route: 048
  5. CONGESCOR [Concomitant]
     Indication: HYPERTENSION
     Dosage: DAILY DOSE 1.25 MG
     Route: 048
  6. FINASTERIDE [Concomitant]
     Dosage: DAILY DOSE 5 MG
     Route: 048
  7. PANTOPRAZOLE [Concomitant]
     Dosage: DAILY DOSE 20 MG
     Route: 048
  8. PANTOPRAZOLE [Concomitant]
     Dosage: DAILY DOSE 40 MG
  9. TORVAST [Concomitant]
     Dosage: DAILY DOSE 20 MG
     Route: 048

REACTIONS (2)
  - Anaemia [Recovering/Resolving]
  - Labelled drug-drug interaction medication error [None]
